FAERS Safety Report 9099178 (Version 1)
Quarter: 2013Q1

REPORT INFORMATION
  Report Type: Spontaneous
  Country: US (occurrence: US)
  Receive Date: 20130213
  Receipt Date: 20130213
  Transmission Date: 20140127
  Serious: Yes (Hospitalization)
  Sender: FDA-Public Use
  Company Number: US-PFIZER INC-2013054791

PATIENT
  Age: 60 Year
  Sex: Male

DRUGS (5)
  1. SUTENT [Suspect]
     Indication: RENAL CANCER
     Dosage: 50 MG, UNK
     Dates: start: 20130121
  2. AUGMENTIN [Concomitant]
     Dosage: UNK
  3. HYDROCHLOROTHIAZIDE/METOPROLOL [Concomitant]
     Dosage: UNK
  4. ASPARTATE POTASSIUM W/MAGNESIUM ASPARTATE [Concomitant]
     Dosage: UNK
  5. VICODIN [Concomitant]
     Dosage: UNK

REACTIONS (1)
  - Haemoglobin decreased [Unknown]
